FAERS Safety Report 4541157-1 (Version None)
Quarter: 2004Q4

REPORT INFORMATION
  Report Type: 
  Country: None (occurrence: None)
  Receive Date: 20041227
  Receipt Date: 20041220
  Transmission Date: 20050328
  Serious: Yes (Disabling)
  Sender: FDA-Public Use
  Company Number: FRWYE386004NOV03

PATIENT
  Age: 72 Year
  Sex: Male

DRUGS (6)
  1. BISOPROLOL FUMARATE [Suspect]
     Indication: ARRHYTHMIA
     Dosage: SEE IMAGE, ORAL
     Route: 048
     Dates: start: 20010615
  2. BISOPROLOL FUMARATE [Suspect]
     Indication: CARDIOMYOPATHY
     Dosage: SEE IMAGE, ORAL
     Route: 048
     Dates: start: 20010615
  3. GLEEVEC [Suspect]
     Indication: CHRONIC MYELOID LEUKAEMIA
     Dosage: 400 MG 1X PER 1 DAY, ORAL
     Route: 048
     Dates: start: 20030708
  4. DITROPAN [Concomitant]
  5. ALLOPURINOL [Concomitant]
  6. BRONCHODUAL (FENOTEROL HYDROBROMIDE/IPRATROPIUM BROMIDE) [Concomitant]

REACTIONS (6)
  - CONCOMITANT DISEASE AGGRAVATED [None]
  - DRUG INTERACTION [None]
  - HICCUPS [None]
  - MUSCLE RIGIDITY [None]
  - PAIN IN EXTREMITY [None]
  - RAYNAUD'S PHENOMENON [None]
